FAERS Safety Report 20966606 (Version 1)
Quarter: 2022Q2

REPORT INFORMATION
  Report Type: Spontaneous
  Country: US (occurrence: None)
  Receive Date: 20220615
  Receipt Date: 20220615
  Transmission Date: 20220720
  Serious: Yes (Other)
  Sender: FDA-Public Use
  Company Number: None

PATIENT
  Sex: Female
  Weight: 121.5 kg

DRUGS (22)
  1. DUPIXENT [Suspect]
     Active Substance: DUPILUMAB
     Indication: Dermatitis atopic
     Dosage: FREQUENCY : EVERY OTHER WEEK;?
     Route: 058
  2. B Complex [Concomitant]
  3. BACLOFEN [Concomitant]
  4. Benefiber [Concomitant]
  5. BIOTIN [Concomitant]
  6. BYDUREON [Concomitant]
     Active Substance: EXENATIDE
  7. CALCIUM CITRATE [Concomitant]
     Active Substance: CALCIUM CITRATE
  8. DICYCLOMINE [Concomitant]
     Active Substance: DICYCLOMINE HYDROCHLORIDE
  9. VITAMINS [Concomitant]
     Active Substance: VITAMINS
  10. FENOFIBRATE [Concomitant]
  11. FLUOXETINE [Concomitant]
  12. HYDROXYCHLOROQUINE [Concomitant]
  13. KETOCONAZOLE [Concomitant]
     Active Substance: KETOCONAZOLE
  14. LEVOTHYROXINE [Concomitant]
     Active Substance: LEVOTHYROXINE
  15. LORAZEPAM [Concomitant]
     Active Substance: LORAZEPAM
  16. LOSARTAN [Concomitant]
     Active Substance: LOSARTAN
  17. Nystop external powder [Concomitant]
  18. OMEPRAZOLE [Concomitant]
  19. Opxelura external cream [Concomitant]
  20. pimecrolimus external cream 1% [Concomitant]
  21. Powderlax laxative [Concomitant]
  22. Tresiba subcutaneous solution [Concomitant]

REACTIONS (1)
  - Vision blurred [None]
